FAERS Safety Report 8996709 (Version 1)
Quarter: 2013Q1

REPORT INFORMATION
  Report Type: Spontaneous
  Country: DE (occurrence: DE)
  Receive Date: 20130104
  Receipt Date: 20130104
  Transmission Date: 20140127
  Serious: Yes (Other)
  Sender: FDA-Public Use
  Company Number: DE-COVIDIEN/TYCO HEALTHCARE/MALLINCKRODT-T201204435

PATIENT
  Age: 0 Year
  Sex: Female
  Weight: 3.08 kg

DRUGS (6)
  1. EXALGO EXTENDED RELEASE [Suspect]
     Indication: FOETAL EXPOSURE DURING PREGNANCY
     Dosage: 20 MG, 1 IN 1 DAY
     Route: 064
  2. CLEXANE [Suspect]
     Indication: FOETAL EXPOSURE DURING PREGNANCY
     Dosage: 20 MG, 1 IN 1 DAY
     Route: 064
     Dates: start: 20090807, end: 20101102
  3. PALLADONE [Suspect]
     Indication: FOETAL EXPOSURE DURING PREGNANCY
     Dosage: 6.96 MG 1 IN 1 DAY
     Route: 064
  4. MORPHINE SULFATE [Suspect]
     Indication: FOETAL EXPOSURE DURING PREGNANCY
     Dosage: UNK
     Route: 064
  5. LYRICA [Suspect]
     Indication: FOETAL EXPOSURE DURING PREGNANCY
     Dosage: UNK
     Route: 064
  6. FENOTEROL [Suspect]
     Indication: FOETAL EXPOSURE DURING PREGNANCY
     Dosage: 20-30 GW
     Route: 064

REACTIONS (2)
  - Foetal exposure during pregnancy [Recovered/Resolved]
  - Drug withdrawal syndrome [Recovered/Resolved]
